FAERS Safety Report 7273291-X (Version None)
Quarter: 2011Q1

REPORT INFORMATION
  Report Type: 
  Country: None (occurrence: None)
  Receive Date: 20110203
  Receipt Date: 20101216
  Transmission Date: 20110831
  Serious: Yes (Hospitalization)
  Sender: FDA-Public Use
  Company Number: US-ABBOTT-10P-163-0691880-00

PATIENT
  Sex: Female
  Weight: 39.952 kg

DRUGS (2)
  1. SYNTHROID [Suspect]
     Dosage: 75MCG; 1 IN 3 DAYS
  2. SYNTHROID [Suspect]
     Indication: AUTOIMMUNE THYROIDITIS
     Dosage: 88MCG; 1 IN 4 DAYS

REACTIONS (5)
  - WEIGHT DECREASED [None]
  - HYPERTENSION [None]
  - MYOCARDIAL INFARCTION [None]
  - COELIAC DISEASE [None]
  - PRURITUS [None]
